FAERS Safety Report 10700747 (Version 1)
Quarter: 2014Q4

REPORT INFORMATION
  Report Type: Spontaneous
  Country: US (occurrence: None)
  Receive Date: 20141224
  Receipt Date: 20141224
  Transmission Date: 20150529
  Serious: Yes (Other)
  Sender: FDA-Public Use
  Company Number: PHEH2014US006875

PATIENT
  Age: 40 Year
  Sex: Male
  Weight: 166 kg

DRUGS (6)
  1. LIPITOR [Concomitant]
     Active Substance: ATORVASTATIN CALCIUM
  2. ATIVAN [Concomitant]
     Active Substance: LORAZEPAM
  3. CLOZARIL [Suspect]
     Active Substance: CLOZAPINE
     Indication: SCHIZOPHRENIA
     Route: 048
     Dates: start: 2001
  4. LAMICTAL [Concomitant]
     Active Substance: LAMOTRIGINE
  5. ZYPREXA ZYDIZ (OLANZAPINE) [Concomitant]
  6. FAZACLO [Suspect]
     Active Substance: CLOZAPINE

REACTIONS (16)
  - Seizure [None]
  - Blood albumin decreased [None]
  - Blood lactic acid increased [None]
  - Blood glucose increased [None]
  - Neutrophil count decreased [None]
  - Carbon dioxide decreased [None]
  - Haematocrit decreased [None]
  - Haemoglobin decreased [None]
  - Blood calcium decreased [None]
  - Protein total decreased [None]
  - Neutrophil count increased [None]
  - Red blood cell count decreased [None]
  - Myoglobin blood decreased [None]
  - Leukocytosis [None]
  - Blood chloride decreased [None]
  - Blood creatine phosphokinase increased [None]

NARRATIVE: CASE EVENT DATE: 20140223
